FAERS Safety Report 4299727-4 (Version None)
Quarter: 2004Q1

REPORT INFORMATION
  Report Type: 
  Country: None (occurrence: None)
  Receive Date: 20040126
  Receipt Date: 20031111
  Transmission Date: 20041129
  Serious: No
  Sender: FDA-Public Use
  Company Number: USA031152335

PATIENT
  Sex: Male

DRUGS (9)
  1. STRATTERA [Suspect]
     Indication: BIPOLAR I DISORDER
     Dosage: 80 MG
     Dates: start: 20030301
  2. DEPAKOTE [Concomitant]
  3. DIOVAN [Concomitant]
  4. METOPROLOL [Concomitant]
  5. LOPID [Concomitant]
  6. METOCLOPRAMIDE [Concomitant]
  7. PREVACID [Concomitant]
  8. ZOCOR [Concomitant]
  9. CLONAZEPAM [Concomitant]

REACTIONS (1)
  - DEPRESSION [None]
